FAERS Safety Report 8234734 (Version 4)
Quarter: 2013Q3

REPORT INFORMATION
  Report Type: Spontaneous
  Country: AR (occurrence: AR)
  Receive Date: 20111108
  Receipt Date: 20130925
  Transmission Date: 20140515
  Serious: Yes (Other)
  Sender: FDA-Public Use
  Company Number: AR-AMGEN-ARGSP2011053439

PATIENT
  Age: 64 Year
  Sex: Female
  Weight: 44 kg

DRUGS (2)
  1. ENBREL [Suspect]
     Indication: RHEUMATOID ARTHRITIS
     Dosage: 25 MG, WEEKLY
     Route: 058
     Dates: start: 20000104
  2. ENBREL [Suspect]
     Dosage: 50 MG, WEEKLY
     Route: 065

REACTIONS (9)
  - Disease progression [Not Recovered/Not Resolved]
  - Pain [Not Recovered/Not Resolved]
  - Arthralgia [Not Recovered/Not Resolved]
  - Activities of daily living impaired [Not Recovered/Not Resolved]
  - Decreased immune responsiveness [Recovered/Resolved]
  - Cough [Recovered/Resolved]
  - Pyrexia [Recovered/Resolved]
  - Arthropathy [Recovered/Resolved]
  - Drug ineffective [Not Recovered/Not Resolved]
